FAERS Safety Report 7669698-9 (Version None)
Quarter: 2011Q3

REPORT INFORMATION
  Report Type: 
  Country: None (occurrence: None)
  Receive Date: 20110808
  Receipt Date: 20110802
  Transmission Date: 20111222
  Serious: Yes (Death)
  Sender: FDA-Public Use
  Company Number: JP-SANOFI-AVENTIS-2011SA049330

PATIENT
  Age: 74 Year
  Sex: Male
  Weight: 63.8 kg

DRUGS (19)
  1. PLAVIX [Suspect]
     Indication: ACUTE MYOCARDIAL INFARCTION
     Route: 048
     Dates: start: 20080602, end: 20080602
  2. HEPARIN SODIUM [Concomitant]
     Route: 041
     Dates: start: 20080602, end: 20080605
  3. ENALAPRIL MALEATE [Concomitant]
     Indication: ACUTE MYOCARDIAL INFARCTION
     Route: 048
     Dates: start: 20080602, end: 20080605
  4. OMEPRAZOLE [Concomitant]
     Route: 048
     Dates: start: 20080602, end: 20080605
  5. OMEPRAZOLE [Concomitant]
     Route: 065
     Dates: start: 20080606, end: 20080611
  6. CONTRAST MEDIA [Suspect]
     Indication: ARTERIOGRAM CORONARY
  7. LIPITOR [Concomitant]
     Indication: ACUTE MYOCARDIAL INFARCTION
     Route: 048
     Dates: start: 20080602, end: 20080605
  8. LEPETAN [Concomitant]
     Route: 041
     Dates: start: 20080605, end: 20080606
  9. HERBESSER ^TANABE^ [Concomitant]
     Indication: ACUTE MYOCARDIAL INFARCTION
     Route: 041
     Dates: start: 20080605, end: 20080611
  10. SIGMART [Concomitant]
     Indication: ACUTE MYOCARDIAL INFARCTION
     Route: 041
     Dates: start: 20080602, end: 20080604
  11. HEPARIN SODIUM [Concomitant]
     Indication: ACUTE MYOCARDIAL INFARCTION
     Route: 042
     Dates: start: 20080602, end: 20080602
  12. PLAVIX [Suspect]
     Route: 048
     Dates: start: 20080603, end: 20080611
  13. ULCERLMIN [Concomitant]
     Route: 048
     Dates: start: 20080606, end: 20080611
  14. MIDAZOLAM HCL [Concomitant]
     Route: 041
     Dates: start: 20080605, end: 20080606
  15. MAGNESIUM OXIDE [Concomitant]
     Route: 048
     Dates: start: 20080606, end: 20080611
  16. ASPIRIN [Concomitant]
     Indication: ACUTE MYOCARDIAL INFARCTION
     Route: 048
     Dates: start: 20080602, end: 20080611
  17. GASMOTIN [Concomitant]
     Route: 048
     Dates: start: 20080606, end: 20080611
  18. MARZULENE S [Concomitant]
     Route: 048
     Dates: start: 20080606, end: 20080611
  19. PROPOFOL [Concomitant]
     Route: 041
     Dates: start: 20080606, end: 20080611

REACTIONS (3)
  - RENAL FAILURE [None]
  - PNEUMONIA [None]
  - CARDIAC FAILURE [None]
